FAERS Safety Report 5238292-1 (Version None)
Quarter: 2007Q1

REPORT INFORMATION
  Report Type: 
  Country: None (occurrence: None)
  Receive Date: 20061208
  Receipt Date: 20050526
  Transmission Date: 20070707
  Serious: Yes (Other)
  Sender: FDA-Public Use
  Company Number: 2005UW08201

PATIENT
  Age: 45 Year
  Sex: Female
  Weight: 63.502 kg

DRUGS (5)
  1. CRESTOR [Suspect]
     Indication: BLOOD CHOLESTEROL INCREASED
     Dosage: HIGH CHOLESTEROL
     Dates: end: 20050401
  2. ZIAC [Concomitant]
  3. MULTI-VITAMINS [Concomitant]
  4. NORCO [Concomitant]
  5. PREMARIN [Concomitant]

REACTIONS (2)
  - HYPOAESTHESIA [None]
  - VISUAL ACUITY REDUCED [None]
